FAERS Safety Report 18429147 (Version 1)
Quarter: 2020Q4

REPORT INFORMATION
  Report Type: Spontaneous
  Country: IT (occurrence: IT)
  Receive Date: 20201026
  Receipt Date: 20201026
  Transmission Date: 20210114
  Serious: Yes (Other)
  Sender: FDA-Public Use
  Company Number: IT-EXELIXIS-CABO-20034226

PATIENT
  Age: 40 Year
  Sex: Male

DRUGS (1)
  1. CABOMETYX [Suspect]
     Active Substance: CABOZANTINIB S-MALATE
     Indication: RENAL CANCER
     Dosage: 60 MG, QD
     Route: 048
     Dates: start: 20200728, end: 20201006

REACTIONS (3)
  - Skin toxicity [Unknown]
  - Hypothyroidism [Unknown]
  - Tetany [Unknown]

NARRATIVE: CASE EVENT DATE: 20201006
